FAERS Safety Report 4897134-4 (Version None)
Quarter: 2006Q1

REPORT INFORMATION
  Report Type: 
  Country: None (occurrence: None)
  Receive Date: 20060127
  Receipt Date: 20060118
  Transmission Date: 20060701
  Serious: Yes (Death)
  Sender: FDA-Public Use
  Company Number: HQWYE794701DEC05

PATIENT

DRUGS (8)
  1. MYLOTARG [Suspect]
     Indication: ACUTE MYELOID LEUKAEMIA RECURRENT
     Dosage: 9 MG/M^2 1X PER 1 DAY INTRAVENOUS DRIP
     Route: 041
     Dates: start: 20051006, end: 20051006
  2. URSO 250 [Concomitant]
  3. STRONG NEO-MINOPHAGEN C (AMINOACETIC ACID/ CYSTEINE/ GLYCYRRHIZIC ACID [Concomitant]
  4. OZEX (TOSUFLOXACIN TOSILATE) [Concomitant]
  5. ITRACONAZOLE [Concomitant]
  6. SULFAMETHOXAZOLE + TRIMETHOPRIM [Concomitant]
  7. FAMOTIDINE [Concomitant]
  8. HYDREA [Concomitant]

REACTIONS (4)
  - FIBRIN DEGRADATION PRODUCTS INCREASED [None]
  - PLATELET COUNT DECREASED [None]
  - PSEUDOMONAL SEPSIS [None]
  - SUDDEN DEATH [None]
